FAERS Safety Report 13974952 (Version 2)
Quarter: 2017Q4

REPORT INFORMATION
  Report Type: Report from Study
  Country: US (occurrence: US)
  Receive Date: 20170915
  Receipt Date: 20171025
  Transmission Date: 20180321
  Serious: Yes (Other)
  Sender: FDA-Public Use
  Company Number: US-AMGEN-USASL2017138825

PATIENT
  Age: 54 Year
  Sex: Female

DRUGS (7)
  1. ENBREL [Suspect]
     Active Substance: ETANERCEPT
     Indication: RHEUMATOID ARTHRITIS
     Dosage: 50 MG, QWK
     Route: 065
     Dates: start: 2016
  2. ENBREL [Suspect]
     Active Substance: ETANERCEPT
     Dosage: 50 MG, QWK
     Route: 065
  3. ENBREL [Suspect]
     Active Substance: ETANERCEPT
     Dosage: 50 MG, QWK
     Route: 065
     Dates: end: 2017
  4. ENBREL [Suspect]
     Active Substance: ETANERCEPT
     Dosage: 50 MG, QWK
     Route: 065
     Dates: start: 20170908
  5. LISINOPRIL. [Concomitant]
     Active Substance: LISINOPRIL
     Dosage: UNK
  6. ENBREL [Suspect]
     Active Substance: ETANERCEPT
     Dosage: UNK
     Route: 065
     Dates: start: 201710
  7. XARELTO [Concomitant]
     Active Substance: RIVAROXABAN
     Dosage: UNK

REACTIONS (16)
  - Pulmonary artery aneurysm [Unknown]
  - Rash papular [Unknown]
  - Cough [Not Recovered/Not Resolved]
  - Rash [Unknown]
  - Injection site pain [Recovered/Resolved]
  - Chest pain [Unknown]
  - Injection site erythema [Recovered/Resolved]
  - Arthralgia [Unknown]
  - Hypersensitivity [Unknown]
  - Pulmonary embolism [Unknown]
  - Product storage error [Unknown]
  - Respiratory tract infection [Recovered/Resolved]
  - Drug effect incomplete [Unknown]
  - Injection site pruritus [Recovered/Resolved]
  - Skin discolouration [Unknown]
  - Pain in extremity [Unknown]

NARRATIVE: CASE EVENT DATE: 2017
